FAERS Safety Report 21169355 (Version 1)
Quarter: 2022Q3

REPORT INFORMATION
  Report Type: Other
  Country: None (occurrence: JP)
  Receive Date: 20220804
  Receipt Date: 20220804
  Transmission Date: 20221027
  Serious: Yes (Hospitalization)
  Sender: FDA-Public Use
  Company Number: JP-ALSI-2022000183

PATIENT
  Age: 69 Year
  Sex: Male

DRUGS (1)
  1. CARBON DIOXIDE [Suspect]
     Active Substance: CARBON DIOXIDE
     Indication: Laparoscopic surgery
     Route: 054

REACTIONS (1)
  - Embolism venous [Unknown]
